FAERS Safety Report 8045602-9 (Version None)
Quarter: 2012Q1

REPORT INFORMATION
  Report Type: 
  Country: None (occurrence: None)
  Receive Date: 20120113
  Receipt Date: 20120109
  Transmission Date: 20120608
  Serious: Yes (Hospitalization, Disabling)
  Sender: FDA-Public Use
  Company Number: US-MERCK-1112USA00472

PATIENT
  Age: 83 Year
  Sex: Female

DRUGS (15)
  1. COZAAR [Suspect]
     Indication: HYPERTENSION
     Route: 048
     Dates: start: 20111031, end: 20111110
  2. GLUCOTROL [Concomitant]
     Route: 065
  3. ASPIRIN [Concomitant]
     Route: 065
  4. HYDRALAZINE [Concomitant]
     Route: 065
  5. LASIX [Concomitant]
     Route: 065
  6. VITAMIN D (UNSPECIFIED) [Concomitant]
     Route: 065
  7. MIRALAX [Concomitant]
     Route: 065
  8. POTASSIUM CHLORIDE [Concomitant]
     Route: 065
  9. COLACE [Concomitant]
     Route: 065
  10. LOPRESSOR [Concomitant]
     Route: 065
  11. TOPROL-XL [Concomitant]
     Route: 065
  12. LISINOPRIL [Concomitant]
     Route: 048
  13. PRINIVIL [Concomitant]
     Route: 048
  14. SIMVASTATIN [Concomitant]
     Route: 048
  15. COUMADIN [Concomitant]
     Route: 065

REACTIONS (4)
  - HYPOKALAEMIA [None]
  - HYPONATRAEMIA [None]
  - OEDEMA PERIPHERAL [None]
  - BLOOD POTASSIUM INCREASED [None]
